FAERS Safety Report 4427623-8 (Version None)
Quarter: 2004Q3

REPORT INFORMATION
  Report Type: 
  Country: None (occurrence: None)
  Receive Date: 20040816
  Receipt Date: 20040816
  Transmission Date: 20050211
  Serious: Yes (Death)
  Sender: FDA-Public Use
  Company Number: None

PATIENT
  Sex: Male
  Weight: 104.3273 kg

DRUGS (1)
  1. AMIODARONE [Suspect]
     Indication: ATRIAL FIBRILLATION
     Dosage: 200 MG, 3 TABLETS TWICE DAILY THEN VARIED DOSES
     Dates: start: 19980419, end: 20030901

REACTIONS (4)
  - DRUG TOXICITY [None]
  - HEPATIC CIRRHOSIS [None]
  - OVERDOSE [None]
  - PORTAL HYPERTENSION [None]
